FAERS Safety Report 5578189-0 (Version None)
Quarter: 2007Q4

REPORT INFORMATION
  Report Type: 
  Country: None (occurrence: None)
  Receive Date: 20071227
  Receipt Date: 20071205
  Transmission Date: 20080405
  Serious: Yes (Hospitalization)
  Sender: FDA-Public Use
  Company Number: 380001J07GBR

PATIENT
  Sex: Female

DRUGS (3)
  1. CRINONE [Suspect]
     Indication: HORMONE REPLACEMENT THERAPY
  2. PREMARIN [Suspect]
     Indication: HORMONE REPLACEMENT THERAPY
  3. PREMARIN [Concomitant]

REACTIONS (4)
  - COLD SWEAT [None]
  - DRUG DOSE OMISSION [None]
  - HEART RATE INCREASED [None]
  - PYREXIA [None]
